FAERS Safety Report 6103244-6 (Version None)
Quarter: 2009Q1

REPORT INFORMATION
  Report Type: 
  Country: None (occurrence: None)
  Receive Date: 20090305
  Receipt Date: 20090226
  Transmission Date: 20090719
  Serious: Yes (Hospitalization)
  Sender: FDA-Public Use
  Company Number: IT-AMGEN-UK331322

PATIENT
  Sex: Male

DRUGS (8)
  1. NESPO [Suspect]
     Indication: ANAEMIA
     Route: 058
     Dates: start: 20080822, end: 20090202
  2. MEDROL [Concomitant]
     Dates: start: 20081116
  3. SANDIMMUNE [Concomitant]
     Route: 048
     Dates: start: 20081116, end: 20090202
  4. CELLCEPT [Concomitant]
     Dates: start: 20081116, end: 20090105
  5. BACTRIM DS [Concomitant]
     Route: 048
     Dates: start: 20081116, end: 20090202
  6. NEXIUM [Concomitant]
     Route: 048
     Dates: start: 20081116, end: 20090202
  7. LASIX [Concomitant]
     Route: 048
     Dates: start: 20081116, end: 20090202
  8. ALLOPURINOL [Concomitant]
     Dates: start: 20081116, end: 20090105

REACTIONS (1)
  - ANAEMIA [None]
